FAERS Safety Report 7598205-4 (Version None)
Quarter: 2011Q3

REPORT INFORMATION
  Report Type: 
  Country: None (occurrence: None)
  Receive Date: 20110708
  Receipt Date: 20110627
  Transmission Date: 20111222
  Serious: Yes (Other)
  Sender: FDA-Public Use
  Company Number: AR-GENZYME-CLOF-1001556

PATIENT
  Sex: Male
  Weight: 65.306 kg

DRUGS (12)
  1. CLOLAR [Suspect]
     Dosage: 48 MG, QD
     Route: 065
     Dates: start: 20110305, end: 20110305
  2. CLOLAR [Suspect]
     Indication: ACUTE LYMPHOCYTIC LEUKAEMIA
     Dosage: 24 MG, QD
     Route: 065
     Dates: start: 20110301, end: 20110303
  3. ETOPOSIDE [Suspect]
     Dosage: 120 MG, QD
     Route: 065
     Dates: start: 20110303, end: 20110305
  4. ETOPOSIDE [Suspect]
     Indication: ACUTE LYMPHOCYTIC LEUKAEMIA
     Dosage: 100 MG, QD
     Route: 065
     Dates: start: 20110301, end: 20110302
  5. MEROPENEM [Concomitant]
     Indication: INFECTION
     Dosage: EV, USUAL
     Route: 065
     Dates: start: 20110310, end: 20110407
  6. VANCOMYCIN [Concomitant]
     Indication: INFECTION
     Dosage: EV, USUAL
     Route: 065
     Dates: start: 20110310, end: 20110407
  7. CLOLAR [Suspect]
     Dosage: 36 MG, QD
     Route: 065
     Dates: start: 20110304, end: 20110304
  8. AMPHOTERICIN B [Concomitant]
     Indication: INFECTION
     Dosage: EV, USUAL
     Route: 065
     Dates: start: 20110310, end: 20110407
  9. CYCLOPHOSPHAMIDE [Suspect]
     Dosage: 500 MG, QD
     Route: 065
     Dates: start: 20110303, end: 20110305
  10. CYCLOPHOSPHAMIDE [Suspect]
     Indication: ACUTE LYMPHOCYTIC LEUKAEMIA
     Dosage: 420 MG, QD
     Route: 065
     Dates: start: 20110301, end: 20110302
  11. AMIKACIN [Concomitant]
     Indication: INFECTION
     Dosage: EV, USUAL
     Route: 065
     Dates: start: 20110310, end: 20110407
  12. COLONY STIMULATING FACTORS [Concomitant]
     Indication: NEUTROPENIA
     Dosage: EV, USUAL
     Route: 065
     Dates: start: 20110310, end: 20110407

REACTIONS (1)
  - HISTIOCYTOSIS HAEMATOPHAGIC [None]
